FAERS Safety Report 9690306 (Version 4)
Quarter: 2014Q2

REPORT INFORMATION
  Report Type: Report from Study
  Country: CA (occurrence: CA)
  Receive Date: 20131115
  Receipt Date: 20140603
  Transmission Date: 20141212
  Serious: Yes (Hospitalization, Other)
  Sender: FDA-Public Use
  Company Number: CA-ALEXION PHARMACEUTICALS INC.-A201303190

PATIENT
  Sex: 0

DRUGS (11)
  1. SOLIRIS [Suspect]
     Indication: HAEMOLYTIC URAEMIC SYNDROME
     Dosage: 900 MG, QW
     Route: 042
     Dates: start: 20130401, end: 20130422
  2. SOLIRIS [Suspect]
     Dosage: 1200 MG, Q2W
     Route: 042
     Dates: start: 20130429
  3. SOLIRIS [Suspect]
     Dosage: 1200 MG, Q2W
     Route: 042
  4. SOLIRIS [Suspect]
     Dosage: 1200 MG, Q2W
     Route: 042
     Dates: start: 20140512
  5. TINZAPARIN [Concomitant]
     Indication: ANTICOAGULANT THERAPY
     Dosage: UNK, DAILY
     Route: 058
     Dates: start: 2009
  6. PREDNISONE [Concomitant]
     Indication: STEROID THERAPY
     Dosage: 10 MG, QD (TAPERING)
     Route: 048
     Dates: start: 2011, end: 201401
  7. PREDNISONE [Concomitant]
     Dosage: 5 MG QD
     Route: 048
     Dates: start: 201401
  8. TETRABENAZINE [Concomitant]
     Indication: DYSKINESIA
     Dosage: 25 MG, QD
     Route: 048
     Dates: start: 201309, end: 201311
  9. RIVAROXABAN [Concomitant]
     Indication: ANTICOAGULANT THERAPY
     Dosage: 20 MG, QD
     Route: 048
     Dates: start: 201401
  10. TYLENOL                            /00020001/ [Concomitant]
     Indication: ANALGESIC THERAPY
     Dosage: 325 -650 MG, PRN Q 4-6 HOURS
     Route: 048
  11. LEVETIRACETAM [Concomitant]
     Indication: CONVULSION
     Dosage: 500 MG, BID
     Route: 048
     Dates: start: 201405

REACTIONS (8)
  - Generalised tonic-clonic seizure [Recovered/Resolved]
  - Road traffic accident [Unknown]
  - Contusion [Recovered/Resolved]
  - Contusion [Recovered/Resolved]
  - Head injury [Recovered/Resolved]
  - Headache [Recovered/Resolved]
  - Headache [Not Recovered/Not Resolved]
  - Fatigue [Not Recovered/Not Resolved]
